FAERS Safety Report 10920851 (Version 1)
Quarter: 2015Q1

REPORT INFORMATION
  Report Type: Spontaneous
  Country: US (occurrence: None)
  Receive Date: 20150312
  Receipt Date: 20150312
  Transmission Date: 20150721
  Serious: No
  Sender: FDA-Public Use
  Company Number: None

PATIENT
  Age: 52 Year
  Sex: Female

DRUGS (11)
  1. AMPYRA [Suspect]
     Active Substance: DALFAMPRIDINE
     Indication: MULTIPLE SCLEROSIS
     Route: 048
     Dates: start: 201207
  2. METFORMIN [Concomitant]
     Active Substance: METFORMIN HYDROCHLORIDE
  3. DANTROLENE [Concomitant]
     Active Substance: DANTROLENE
  4. COPAXONE [Concomitant]
     Active Substance: GLATIRAMER ACETATE
  5. TIZANIDINE (TIZANIDINE) [Concomitant]
     Active Substance: TIZANIDINE
  6. AZATHIOPRINE. [Concomitant]
     Active Substance: AZATHIOPRINE
  7. LYRICA [Concomitant]
     Active Substance: PREGABALIN
  8. LISINOPRIL. [Concomitant]
     Active Substance: LISINOPRIL
  9. HUMULIN N [Concomitant]
     Active Substance: INSULIN HUMAN
  10. HUMULIN R [Concomitant]
     Active Substance: INSULIN HUMAN
  11. PRAVASTATIN [Concomitant]
     Active Substance: PRAVASTATIN\PRAVASTATIN SODIUM

REACTIONS (1)
  - Urinary tract infection [None]

NARRATIVE: CASE EVENT DATE: 20140430
